FAERS Safety Report 7449504-8 (Version None)
Quarter: 2011Q2

REPORT INFORMATION
  Report Type: 
  Country: None (occurrence: None)
  Receive Date: 20110502
  Receipt Date: 20110419
  Transmission Date: 20111010
  Serious: Yes (Hospitalization)
  Sender: FDA-Public Use
  Company Number: FR-BAYER-2011-034559

PATIENT
  Age: 53 Year
  Sex: Male

DRUGS (6)
  1. FLAGYL [Concomitant]
     Dosage: UNK
     Dates: start: 20110225, end: 20110312
  2. FORTUM [Suspect]
     Indication: PYREXIA
     Dosage: 6 G, QD
     Route: 042
     Dates: start: 20110225, end: 20110312
  3. TAZOCILLINE [Concomitant]
     Dosage: 4 G, TID
     Route: 042
     Dates: start: 20110221, end: 20110225
  4. VANCOMYCIN [Suspect]
     Indication: PYREXIA
     Dosage: 1 G, BID
     Route: 042
     Dates: start: 20110221, end: 20110312
  5. CANCIDAS [Concomitant]
     Dosage: 50 MG, QD
     Route: 042
     Dates: start: 20110307, end: 20110312
  6. CIFLOX [Suspect]
     Dosage: 500 MG, BID
     Route: 042
     Dates: start: 20110225, end: 20110312

REACTIONS (4)
  - CHOLESTASIS [None]
  - ACUTE HEPATIC FAILURE [None]
  - DRUG RASH WITH EOSINOPHILIA AND SYSTEMIC SYMPTOMS [None]
  - TOXIC SKIN ERUPTION [None]
